FAERS Safety Report 4380028-0 (Version None)
Quarter: 2004Q2

REPORT INFORMATION
  Report Type: 
  Country: None (occurrence: None)
  Receive Date: 20040614
  Receipt Date: 20040602
  Transmission Date: 20050107
  Serious: Yes (Life-Threatening, Hospitalization, Disabling)
  Sender: FDA-Public Use
  Company Number: 2004030624

PATIENT
  Age: 49 Year
  Sex: Male
  Weight: 52 kg

DRUGS (2)
  1. ZOLOFT [Suspect]
     Indication: DEPRESSION
     Dosage: 150 MG, ORAL
     Route: 048
     Dates: start: 20040413, end: 20040505
  2. PIPAMPERONE (PIPAMPERONE) [Concomitant]

REACTIONS (1)
  - CEREBRAL INFARCTION [None]
